FAERS Safety Report 16912268 (Version 1)
Quarter: 2019Q4

REPORT INFORMATION
  Report Type: Report from Study
  Country: US (occurrence: US)
  Receive Date: 20191014
  Receipt Date: 20191014
  Transmission Date: 20200122
  Serious: Yes (Other)
  Sender: FDA-Public Use
  Company Number: US-ASTELLAS-2019US010086

PATIENT
  Age: 84 Year
  Sex: Male

DRUGS (3)
  1. ENZALUTAMIDE [Suspect]
     Active Substance: ENZALUTAMIDE
     Route: 048
  2. ENZALUTAMIDE [Suspect]
     Active Substance: ENZALUTAMIDE
     Indication: PROSTATE CANCER
     Route: 048
     Dates: start: 20190201
  3. ENZALUTAMIDE [Suspect]
     Active Substance: ENZALUTAMIDE
     Route: 048

REACTIONS (9)
  - Arthritis [Not Recovered/Not Resolved]
  - Constipation [Unknown]
  - Asthenia [Unknown]
  - Nausea [Not Recovered/Not Resolved]
  - Taste disorder [Unknown]
  - Cardiac disorder [Unknown]
  - Decreased appetite [Unknown]
  - Fatigue [Unknown]
  - Product dose omission [Unknown]

NARRATIVE: CASE EVENT DATE: 201904
